FAERS Safety Report 9966089 (Version 1)
Quarter: 2014Q1

REPORT INFORMATION
  Report Type: Report from Study
  Country: US (occurrence: US)
  Receive Date: 20140305
  Receipt Date: 20140305
  Transmission Date: 20141002
  Serious: No
  Sender: FDA-Public Use
  Company Number: US-ABBVIE-13P-163-1127254-00

PATIENT
  Sex: 0

DRUGS (1)
  1. HUMIRA [Suspect]
     Indication: PRODUCT USED FOR UNKNOWN INDICATION
     Route: 058

REACTIONS (5)
  - Arthralgia [Unknown]
  - Visual impairment [Unknown]
  - Rash [Unknown]
  - Skin disorder [Unknown]
  - Arthropathy [Unknown]
